FAERS Safety Report 22148721 (Version 1)
Quarter: 2023Q1

REPORT INFORMATION
  Report Type: Report from Study
  Country: US (occurrence: US)
  Receive Date: 20230328
  Receipt Date: 20230328
  Transmission Date: 20230418
  Serious: Yes (Other)
  Sender: FDA-Public Use
  Company Number: US-MAYNE PHARMA-2023TMD00130

PATIENT
  Sex: Female

DRUGS (1)
  1. ANNOVERA [Suspect]
     Active Substance: ETHINYL ESTRADIOL\SEGESTERONE ACETATE
     Indication: Contraception
     Dosage: INSERT ANNOVERA IN THE VAGINA AND LEAVE FOR 3 WEEKS AND REMOVE FOR 1 WEEK REPEAT FOR UP TO 13 CYCLES
     Route: 067

REACTIONS (3)
  - Cerebrospinal fluid retention [Unknown]
  - Weight abnormal [Unknown]
  - Headache [Unknown]
